FAERS Safety Report 4629874-6 (Version None)
Quarter: 2005Q2

REPORT INFORMATION
  Report Type: 
  Country: None (occurrence: None)
  Receive Date: 20050407
  Receipt Date: 20050324
  Transmission Date: 20051028
  Serious: Yes (Hospitalization)
  Sender: FDA-Public Use
  Company Number: 2005049363

PATIENT
  Age: 41 Year
  Sex: Female
  Weight: 80 kg

DRUGS (5)
  1. XANAX [Suspect]
     Indication: ILL-DEFINED DISORDER
     Dosage: ORAL
     Route: 048
     Dates: start: 19960101
  2. ZOPICLONE (ZOPICLONE) [Suspect]
     Indication: ILL-DEFINED DISORDER
     Dosage: 7.5 MG, ORAL
     Route: 048
     Dates: start: 19960101, end: 20050207
  3. BROMAZEPAM (BROMAZEPAM) [Suspect]
     Indication: ILL-DEFINED DISORDER
     Dosage: ORAL
     Route: 048
     Dates: start: 19960101, end: 20050207
  4. PROPOFAN (CAFFEINE, CARBASALATE CALCIUM, CHLORPHENAMINE MALEATE, DEXTR [Suspect]
     Indication: ILL-DEFINED DISORDER
     Dosage: ORAL
     Route: 048
     Dates: start: 19960101, end: 20050207
  5. PAROXETINE HCL [Suspect]
     Indication: ILL-DEFINED DISORDER
     Dosage: 20 MG,ORAL
     Route: 048
     Dates: start: 19960101, end: 20050207

REACTIONS (6)
  - ALANINE AMINOTRANSFERASE INCREASED [None]
  - ASPARTATE AMINOTRANSFERASE INCREASED [None]
  - BLOOD BILIRUBIN INCREASED [None]
  - GAMMA-GLUTAMYLTRANSFERASE INCREASED [None]
  - JAUNDICE [None]
  - PROTHROMBIN TIME RATIO ABNORMAL [None]
